FAERS Safety Report 17923115 (Version 3)
Quarter: 2020Q4

REPORT INFORMATION
  Report Type: Report from Study
  Country: US (occurrence: US)
  Receive Date: 20200622
  Receipt Date: 20201012
  Transmission Date: 20210113
  Serious: Yes (Hospitalization, Other)
  Sender: FDA-Public Use
  Company Number: US-GILEAD-2020-0474500

PATIENT
  Age: 16 Year
  Sex: Female

DRUGS (1)
  1. AZTREONAM LYSINE [Suspect]
     Active Substance: AZTREONAM LYSINE
     Indication: CYSTIC FIBROSIS
     Dosage: 75 MG, TID, 28 DAYS ON AND 28 DAYS OFF.
     Route: 055
     Dates: start: 20151125

REACTIONS (5)
  - Cystic fibrosis respiratory infection suppression [Unknown]
  - Seizure [Unknown]
  - Infection [Not Recovered/Not Resolved]
  - Blood potassium decreased [Unknown]
  - Pneumothorax [Not Recovered/Not Resolved]
